FAERS Safety Report 6280340-4 (Version None)
Quarter: 2009Q3

REPORT INFORMATION
  Report Type: 
  Country: None (occurrence: None)
  Receive Date: 20090724
  Receipt Date: 20090717
  Transmission Date: 20100115
  Serious: Yes (Hospitalization)
  Sender: FDA-Public Use
  Company Number: US-BIOGENIDEC-2009BI005694

PATIENT
  Age: 69 Year
  Sex: Female
  Weight: 108 kg

DRUGS (2)
  1. AVONEX [Suspect]
     Indication: MULTIPLE SCLEROSIS
     Route: 030
     Dates: start: 20050101, end: 20060101
  2. AVONEX [Suspect]
     Route: 030
     Dates: start: 20060101

REACTIONS (6)
  - ARTHRALGIA [None]
  - ARTHRITIS [None]
  - CATARACT [None]
  - JOINT SWELLING [None]
  - PNEUMONIA [None]
  - SJOGREN'S SYNDROME [None]
